FAERS Safety Report 10094184 (Version 1)
Quarter: 2014Q2

REPORT INFORMATION
  Report Type: Spontaneous
  Country: US (occurrence: US)
  Receive Date: 20140422
  Receipt Date: 20140422
  Transmission Date: 20141212
  Serious: No
  Sender: FDA-Public Use
  Company Number: US-B.I. PHARMACEUTICALS,INC./RIDGEFIELD-2014-BI-16735BP

PATIENT
  Sex: Female

DRUGS (3)
  1. ZANTAC 150 (RANITIDINE HYDROCHLORIDE) [Suspect]
     Indication: DYSPEPSIA
     Dosage: 150 MG
     Route: 048
     Dates: start: 20140408
  2. VALSARTAN HCTZ [Concomitant]
     Dosage: STRENGTH: 160/25
     Route: 048
  3. MELOXICAM [Concomitant]
     Route: 048

REACTIONS (1)
  - Urine amphetamine positive [Unknown]
